FAERS Safety Report 18337063 (Version 1)
Quarter: 2020Q4

REPORT INFORMATION
  Report Type: Spontaneous
  Country: US (occurrence: US)
  Receive Date: 20201002
  Receipt Date: 20201002
  Transmission Date: 20210113
  Serious: Yes (Other)
  Sender: FDA-Public Use
  Company Number: US-MELINTA THERAPEUTICS, INC-US-MLNT-19-00173

PATIENT
  Sex: Male

DRUGS (2)
  1. ORBACTIV [Suspect]
     Active Substance: ORITAVANCIN
     Indication: STAPHYLOCOCCAL INFECTION
  2. ORBACTIV [Suspect]
     Active Substance: ORITAVANCIN
     Indication: LOCALISED INFECTION
     Route: 041
     Dates: start: 20191005, end: 20191005

REACTIONS (5)
  - Tinnitus [Unknown]
  - Emotional disorder [Unknown]
  - Drug ineffective [Unknown]
  - Candida infection [Recovering/Resolving]
  - Headache [Unknown]
